FAERS Safety Report 22088893 (Version 1)
Quarter: 2023Q1

REPORT INFORMATION
  Report Type: Spontaneous
  Country: US (occurrence: None)
  Receive Date: 20230310
  Receipt Date: 20230310
  Transmission Date: 20230418
  Serious: Yes (Death)
  Sender: FDA-Public Use
  Company Number: None

PATIENT
  Age: 69 Year
  Sex: Female

DRUGS (1)
  1. REPATHA [Suspect]
     Active Substance: EVOLOCUMAB
     Indication: Hypercholesterolaemia
     Dosage: 1 ML EVERY 2 WEEKS SUBCUTANEOUS?
     Route: 058
     Dates: start: 20210902, end: 20230112

REACTIONS (1)
  - Back pain [None]

NARRATIVE: CASE EVENT DATE: 20230307
